FAERS Safety Report 12282932 (Version 3)
Quarter: 2016Q2

REPORT INFORMATION
  Report Type: Spontaneous
  Country: US (occurrence: US)
  Receive Date: 20160419
  Receipt Date: 20160606
  Transmission Date: 20160815
  Serious: Yes (Other)
  Sender: FDA-Public Use
  Company Number: US-PFIZER INC-2016220863

PATIENT
  Age: 69 Year
  Sex: Male
  Weight: 102 kg

DRUGS (3)
  1. COENZYME Q10 [Interacting]
     Active Substance: UBIDECARENONE
     Indication: SUPPLEMENTATION THERAPY
     Dosage: 200 MG, 1X/DAY
  2. TIKOSYN [Interacting]
     Active Substance: DOFETILIDE
     Dosage: UNK
  3. TIKOSYN [Suspect]
     Active Substance: DOFETILIDE
     Indication: ATRIAL FIBRILLATION
     Dosage: 375 UG, 2X/DAY
     Dates: start: 20160401

REACTIONS (2)
  - Drug ineffective [Unknown]
  - Drug interaction [Unknown]

NARRATIVE: CASE EVENT DATE: 201604
